FAERS Safety Report 23909823 (Version 5)
Quarter: 2025Q2

REPORT INFORMATION
  Report Type: Spontaneous
  Country: CA (occurrence: CA)
  Receive Date: 20240528
  Receipt Date: 20250618
  Transmission Date: 20250716
  Serious: Yes (Death, Life-Threatening, Hospitalization, Disabling, Congenital Anomaly, Other)
  Sender: Haleon PLC
  Company Number: CA-002147023-NVSC2023CA007242

PATIENT
  Age: 44 Year
  Sex: Female
  Weight: 97 kg

DRUGS (668)
  1. VOLTAREN [Suspect]
     Active Substance: DICLOFENAC SODIUM
     Indication: Product used for unknown indication
     Route: 047
  2. VOLTAREN [Suspect]
     Active Substance: DICLOFENAC SODIUM
  3. VOLTAREN [Suspect]
     Active Substance: DICLOFENAC SODIUM
     Route: 058
  4. VOLTAREN [Suspect]
     Active Substance: DICLOFENAC SODIUM
     Route: 048
  5. VOLTAREN [Suspect]
     Active Substance: DICLOFENAC SODIUM
     Route: 031
  6. ACETAMINOPHEN [Suspect]
     Active Substance: ACETAMINOPHEN
     Indication: Product used for unknown indication
  7. DICLOFENAC POTASSIUM [Suspect]
     Active Substance: DICLOFENAC POTASSIUM
     Indication: Product used for unknown indication
  8. DICLOFENAC POTASSIUM [Suspect]
     Active Substance: DICLOFENAC POTASSIUM
     Route: 048
  9. DICLOFENAC POTASSIUM [Suspect]
     Active Substance: DICLOFENAC POTASSIUM
  10. DICLOFENAC POTASSIUM [Suspect]
     Active Substance: DICLOFENAC POTASSIUM
     Route: 058
  11. DICLOFENAC SODIUM [Suspect]
     Active Substance: DICLOFENAC SODIUM
     Indication: Product used for unknown indication
  12. DICLOFENAC SODIUM [Suspect]
     Active Substance: DICLOFENAC SODIUM
     Indication: Rheumatoid arthritis
     Route: 048
  13. DICLOFENAC SODIUM [Suspect]
     Active Substance: DICLOFENAC SODIUM
     Indication: Osteoarthritis
  14. DICLOFENAC SODIUM [Suspect]
     Active Substance: DICLOFENAC SODIUM
     Indication: Inflammation
  15. DICLOFENAC SODIUM [Suspect]
     Active Substance: DICLOFENAC SODIUM
  16. DICLOFENAC SODIUM [Suspect]
     Active Substance: DICLOFENAC SODIUM
     Route: 047
  17. DICLOFENAC SODIUM [Suspect]
     Active Substance: DICLOFENAC SODIUM
  18. DICLOFENAC SODIUM [Suspect]
     Active Substance: DICLOFENAC SODIUM
     Route: 047
  19. DICLOFENAC SODIUM [Suspect]
     Active Substance: DICLOFENAC SODIUM
     Route: 058
  20. DICLOFENAC SODIUM [Suspect]
     Active Substance: DICLOFENAC SODIUM
     Route: 058
  21. DICLOFENAC SODIUM [Suspect]
     Active Substance: DICLOFENAC SODIUM
  22. DICLOFENAC SODIUM [Suspect]
     Active Substance: DICLOFENAC SODIUM
  23. DICLOFENAC SODIUM [Suspect]
     Active Substance: DICLOFENAC SODIUM
  24. DICLOFENAC SODIUM [Suspect]
     Active Substance: DICLOFENAC SODIUM
     Route: 047
  25. DICLOFENAC SODIUM [Suspect]
     Active Substance: DICLOFENAC SODIUM
     Route: 058
  26. TUMS ULTRA [Suspect]
     Active Substance: CALCIUM CARBONATE
     Indication: Product used for unknown indication
  27. COSENTYX [Suspect]
     Active Substance: SECUKINUMAB
     Indication: Rheumatoid arthritis
     Route: 005
  28. COSENTYX [Suspect]
     Active Substance: SECUKINUMAB
     Indication: Psoriatic arthropathy
  29. COSENTYX [Suspect]
     Active Substance: SECUKINUMAB
     Route: 042
  30. COSENTYX [Suspect]
     Active Substance: SECUKINUMAB
     Route: 005
  31. COSENTYX [Suspect]
     Active Substance: SECUKINUMAB
     Route: 042
  32. COSENTYX [Suspect]
     Active Substance: SECUKINUMAB
  33. COSENTYX [Suspect]
     Active Substance: SECUKINUMAB
     Route: 048
  34. ADALIMUMAB [Suspect]
     Active Substance: ADALIMUMAB
     Indication: Psoriatic arthropathy
     Route: 058
  35. ADALIMUMAB [Suspect]
     Active Substance: ADALIMUMAB
     Indication: Rheumatoid arthritis
     Route: 042
  36. ADALIMUMAB [Suspect]
     Active Substance: ADALIMUMAB
     Indication: Product used for unknown indication
     Route: 058
  37. ADALIMUMAB [Suspect]
     Active Substance: ADALIMUMAB
     Route: 058
  38. ADALIMUMAB [Suspect]
     Active Substance: ADALIMUMAB
     Route: 048
  39. ADALIMUMAB [Suspect]
     Active Substance: ADALIMUMAB
  40. ADALIMUMAB [Suspect]
     Active Substance: ADALIMUMAB
     Route: 058
  41. ADALIMUMAB [Suspect]
     Active Substance: ADALIMUMAB
  42. ADALIMUMAB [Suspect]
     Active Substance: ADALIMUMAB
  43. ADALIMUMAB [Suspect]
     Active Substance: ADALIMUMAB
     Route: 058
  44. ERELZI [Suspect]
     Active Substance: ETANERCEPT-SZZS
     Indication: Rheumatoid arthritis
     Route: 058
  45. ERELZI [Suspect]
     Active Substance: ETANERCEPT-SZZS
  46. ERELZI [Suspect]
     Active Substance: ETANERCEPT-SZZS
     Route: 058
  47. ERELZI [Suspect]
     Active Substance: ETANERCEPT-SZZS
     Route: 058
  48. ERELZI [Suspect]
     Active Substance: ETANERCEPT-SZZS
     Dosage: 50 MG, QW
     Route: 058
  49. ERELZI [Suspect]
     Active Substance: ETANERCEPT-SZZS
  50. METHOTREXATE [Suspect]
     Active Substance: METHOTREXATE
     Indication: Rheumatoid arthritis
     Route: 048
  51. METHOTREXATE [Suspect]
     Active Substance: METHOTREXATE
     Route: 048
  52. METHOTREXATE [Suspect]
     Active Substance: METHOTREXATE
     Route: 048
  53. METHOTREXATE [Suspect]
     Active Substance: METHOTREXATE
     Route: 048
  54. METHOTREXATE [Suspect]
     Active Substance: METHOTREXATE
     Route: 048
  55. METHOTREXATE [Suspect]
     Active Substance: METHOTREXATE
     Route: 048
  56. METHOTREXATE [Suspect]
     Active Substance: METHOTREXATE
     Route: 048
  57. METHOTREXATE [Suspect]
     Active Substance: METHOTREXATE
     Route: 048
  58. METHOTREXATE [Suspect]
     Active Substance: METHOTREXATE
     Route: 048
  59. METHOTREXATE [Suspect]
     Active Substance: METHOTREXATE
     Route: 048
  60. METHOTREXATE [Suspect]
     Active Substance: METHOTREXATE
     Route: 048
  61. METHOTREXATE [Suspect]
     Active Substance: METHOTREXATE
     Route: 048
  62. METHOTREXATE [Suspect]
     Active Substance: METHOTREXATE
     Route: 048
  63. METHOTREXATE [Suspect]
     Active Substance: METHOTREXATE
     Route: 048
  64. METHOTREXATE [Suspect]
     Active Substance: METHOTREXATE
     Route: 048
  65. METHOTREXATE [Suspect]
     Active Substance: METHOTREXATE
     Route: 048
  66. METHOTREXATE [Suspect]
     Active Substance: METHOTREXATE
  67. METHOTREXATE [Suspect]
     Active Substance: METHOTREXATE
  68. METHOTREXATE [Suspect]
     Active Substance: METHOTREXATE
  69. METHOTREXATE [Suspect]
     Active Substance: METHOTREXATE
     Route: 058
  70. METHOTREXATE [Suspect]
     Active Substance: METHOTREXATE
     Route: 058
  71. METHOTREXATE [Suspect]
     Active Substance: METHOTREXATE
     Route: 058
  72. METHOTREXATE [Suspect]
     Active Substance: METHOTREXATE
  73. METHOTREXATE [Suspect]
     Active Substance: METHOTREXATE
     Route: 013
  74. METHOTREXATE [Suspect]
     Active Substance: METHOTREXATE
  75. METHOTREXATE [Suspect]
     Active Substance: METHOTREXATE
     Route: 058
  76. METHOTREXATE [Suspect]
     Active Substance: METHOTREXATE
     Dosage: DURATION 11 YEARS
     Route: 048
  77. METHOTREXATE [Suspect]
     Active Substance: METHOTREXATE
  78. METHOTREXATE [Suspect]
     Active Substance: METHOTREXATE
     Route: 048
  79. METHOTREXATE [Suspect]
     Active Substance: METHOTREXATE
     Route: 048
  80. METHOTREXATE [Suspect]
     Active Substance: METHOTREXATE
     Route: 058
  81. METHOTREXATE [Suspect]
     Active Substance: METHOTREXATE
     Route: 048
  82. METHOTREXATE [Suspect]
     Active Substance: METHOTREXATE
  83. METHOTREXATE [Suspect]
     Active Substance: METHOTREXATE
  84. METHOTREXATE [Suspect]
     Active Substance: METHOTREXATE
  85. METHOTREXATE [Suspect]
     Active Substance: METHOTREXATE
     Route: 048
  86. METHOTREXATE [Suspect]
     Active Substance: METHOTREXATE
     Route: 048
  87. METHOTREXATE [Suspect]
     Active Substance: METHOTREXATE
     Route: 048
  88. OXYCODONE [Suspect]
     Active Substance: OXYCODONE
     Indication: Product used for unknown indication
     Route: 042
  89. OXYCODONE HYDROCHLORIDE [Suspect]
     Active Substance: OXYCODONE HYDROCHLORIDE
     Indication: Product used for unknown indication
  90. OXYCODONE HYDROCHLORIDE [Suspect]
     Active Substance: OXYCODONE HYDROCHLORIDE
  91. PREDNISOLONE [Suspect]
     Active Substance: PREDNISOLONE
     Indication: Psoriatic arthropathy
     Route: 048
  92. PREDNISOLONE [Suspect]
     Active Substance: PREDNISOLONE
     Indication: Rheumatoid arthritis
  93. PREDNISOLONE [Suspect]
     Active Substance: PREDNISOLONE
     Route: 048
  94. PREDNISOLONE [Suspect]
     Active Substance: PREDNISOLONE
     Route: 048
  95. PREDNISOLONE [Suspect]
     Active Substance: PREDNISOLONE
  96. PREDNISOLONE [Suspect]
     Active Substance: PREDNISOLONE
     Route: 048
  97. PREDNISOLONE [Suspect]
     Active Substance: PREDNISOLONE
     Route: 048
  98. PREDNISOLONE [Suspect]
     Active Substance: PREDNISOLONE
  99. PREDNISOLONE [Suspect]
     Active Substance: PREDNISOLONE
     Route: 048
  100. PREDNISOLONE [Suspect]
     Active Substance: PREDNISOLONE
  101. PREDNISOLONE [Suspect]
     Active Substance: PREDNISOLONE
     Route: 042
  102. PREDNISOLONE [Suspect]
     Active Substance: PREDNISOLONE
  103. PREDNISOLONE [Suspect]
     Active Substance: PREDNISOLONE
     Route: 048
  104. PREDNISOLONE [Suspect]
     Active Substance: PREDNISOLONE
     Route: 048
  105. PREDNISOLONE [Suspect]
     Active Substance: PREDNISOLONE
  106. PREDNISOLONE [Suspect]
     Active Substance: PREDNISOLONE
     Route: 048
  107. MYCOPHENOLATE MOFETIL [Suspect]
     Active Substance: MYCOPHENOLATE MOFETIL
     Indication: Product used for unknown indication
  108. MYCOPHENOLATE MOFETIL [Suspect]
     Active Substance: MYCOPHENOLATE MOFETIL
  109. MOXIFLOXACIN [Suspect]
     Active Substance: MOXIFLOXACIN
     Indication: Product used for unknown indication
     Route: 058
  110. PREGABALIN [Suspect]
     Active Substance: PREGABALIN
     Indication: Product used for unknown indication
  111. PREGABALIN [Suspect]
     Active Substance: PREGABALIN
  112. ALENDRONATE SODIUM [Suspect]
     Active Substance: ALENDRONATE SODIUM
     Indication: Rheumatoid arthritis
  113. ALENDRONATE SODIUM [Suspect]
     Active Substance: ALENDRONATE SODIUM
     Route: 048
  114. ALENDRONATE SODIUM [Suspect]
     Active Substance: ALENDRONATE SODIUM
     Route: 058
  115. ALENDRONATE SODIUM [Suspect]
     Active Substance: ALENDRONATE SODIUM
     Route: 048
  116. ALENDRONATE SODIUM [Suspect]
     Active Substance: ALENDRONATE SODIUM
     Route: 058
  117. ALENDRONATE SODIUM [Suspect]
     Active Substance: ALENDRONATE SODIUM
     Route: 048
  118. ALENDRONATE SODIUM [Suspect]
     Active Substance: ALENDRONATE SODIUM
     Route: 016
  119. ALENDRONATE SODIUM [Suspect]
     Active Substance: ALENDRONATE SODIUM
     Route: 005
  120. ALENDRONATE SODIUM [Suspect]
     Active Substance: ALENDRONATE SODIUM
     Route: 016
  121. VITAMIN C [Suspect]
     Active Substance: ASCORBIC ACID
     Indication: Product used for unknown indication
  122. VITAMIN C [Suspect]
     Active Substance: ASCORBIC ACID
  123. RITUXIMAB [Suspect]
     Active Substance: RITUXIMAB
     Indication: Rheumatoid arthritis
  124. RITUXIMAB [Suspect]
     Active Substance: RITUXIMAB
     Route: 042
  125. RITUXIMAB [Suspect]
     Active Substance: RITUXIMAB
     Route: 058
  126. RITUXIMAB [Suspect]
     Active Substance: RITUXIMAB
     Route: 058
  127. RITUXIMAB [Suspect]
     Active Substance: RITUXIMAB
     Route: 016
  128. RITUXIMAB [Suspect]
     Active Substance: RITUXIMAB
  129. RITUXIMAB [Suspect]
     Active Substance: RITUXIMAB
     Route: 042
  130. RITUXIMAB [Suspect]
     Active Substance: RITUXIMAB
     Route: 042
  131. RITUXIMAB [Suspect]
     Active Substance: RITUXIMAB
  132. INFLIXIMAB [Suspect]
     Active Substance: INFLIXIMAB
     Indication: Rheumatoid arthritis
     Route: 042
  133. INFLIXIMAB [Suspect]
     Active Substance: INFLIXIMAB
     Indication: Psoriatic arthropathy
  134. INFLIXIMAB [Suspect]
     Active Substance: INFLIXIMAB
  135. INFLIXIMAB [Suspect]
     Active Substance: INFLIXIMAB
     Route: 042
  136. INFLIXIMAB [Suspect]
     Active Substance: INFLIXIMAB
  137. LEFLUNOMIDE [Suspect]
     Active Substance: LEFLUNOMIDE
     Indication: Rheumatoid arthritis
     Route: 048
  138. LEFLUNOMIDE [Suspect]
     Active Substance: LEFLUNOMIDE
     Route: 048
  139. LEFLUNOMIDE [Suspect]
     Active Substance: LEFLUNOMIDE
     Route: 048
  140. FOLIC ACID [Suspect]
     Active Substance: FOLIC ACID
     Indication: Rheumatoid arthritis
  141. FOLIC ACID [Suspect]
     Active Substance: FOLIC ACID
  142. FOLIC ACID [Suspect]
     Active Substance: FOLIC ACID
  143. FOLIC ACID [Suspect]
     Active Substance: FOLIC ACID
  144. FOLIC ACID [Suspect]
     Active Substance: FOLIC ACID
  145. FOLIC ACID [Suspect]
     Active Substance: FOLIC ACID
  146. FOLIC ACID [Suspect]
     Active Substance: FOLIC ACID
  147. FOLIC ACID [Suspect]
     Active Substance: FOLIC ACID
  148. FOLIC ACID [Suspect]
     Active Substance: FOLIC ACID
  149. FOLIC ACID [Suspect]
     Active Substance: FOLIC ACID
  150. FOLIC ACID [Suspect]
     Active Substance: FOLIC ACID
  151. FOLIC ACID [Suspect]
     Active Substance: FOLIC ACID
  152. FOLIC ACID [Suspect]
     Active Substance: FOLIC ACID
  153. FOLIC ACID [Suspect]
     Active Substance: FOLIC ACID
     Dosage: 1 MG, QW
  154. FOLIC ACID [Suspect]
     Active Substance: FOLIC ACID
  155. FOLIC ACID [Suspect]
     Active Substance: FOLIC ACID
  156. FOLIC ACID [Suspect]
     Active Substance: FOLIC ACID
  157. FOLIC ACID [Suspect]
     Active Substance: FOLIC ACID
  158. FOLIC ACID [Suspect]
     Active Substance: FOLIC ACID
  159. FOLIC ACID [Suspect]
     Active Substance: FOLIC ACID
     Route: 048
  160. FOLIC ACID [Suspect]
     Active Substance: FOLIC ACID
     Dosage: 1 MG, QW
  161. FOLIC ACID [Suspect]
     Active Substance: FOLIC ACID
     Route: 058
  162. FOLIC ACID [Suspect]
     Active Substance: FOLIC ACID
  163. FOLIC ACID [Suspect]
     Active Substance: FOLIC ACID
     Route: 016
  164. FOLIC ACID [Suspect]
     Active Substance: FOLIC ACID
  165. FOLIC ACID [Suspect]
     Active Substance: FOLIC ACID
     Route: 048
  166. ACETAMINOPHEN [Suspect]
     Active Substance: ACETAMINOPHEN
     Indication: Rheumatoid arthritis
  167. ACETAMINOPHEN [Suspect]
     Active Substance: ACETAMINOPHEN
     Indication: Pyrexia
  168. ACETAMINOPHEN [Suspect]
     Active Substance: ACETAMINOPHEN
     Indication: Pain
  169. ACETAMINOPHEN [Suspect]
     Active Substance: ACETAMINOPHEN
     Indication: Crohn^s disease
  170. ACETAMINOPHEN [Suspect]
     Active Substance: ACETAMINOPHEN
     Route: 048
  171. ACETAMINOPHEN [Suspect]
     Active Substance: ACETAMINOPHEN
     Route: 058
  172. ALENDRONIC ACID [Suspect]
     Active Substance: ALENDRONIC ACID
     Indication: Rheumatoid arthritis
  173. ALENDRONIC ACID [Suspect]
     Active Substance: ALENDRONIC ACID
     Route: 016
  174. ALENDRONIC ACID [Suspect]
     Active Substance: ALENDRONIC ACID
  175. ALENDRONIC ACID [Suspect]
     Active Substance: ALENDRONIC ACID
     Route: 048
  176. ALENDRONIC ACID [Suspect]
     Active Substance: ALENDRONIC ACID
  177. ALENDRONIC ACID [Suspect]
     Active Substance: ALENDRONIC ACID
     Route: 048
  178. ALENDRONIC ACID [Suspect]
     Active Substance: ALENDRONIC ACID
  179. ALENDRONIC ACID [Suspect]
     Active Substance: ALENDRONIC ACID
     Route: 048
  180. DOXYCYCLINE HYCLATE [Suspect]
     Active Substance: DOXYCYCLINE HYCLATE
     Indication: Product used for unknown indication
  181. DOXYCYCLINE HYCLATE [Suspect]
     Active Substance: DOXYCYCLINE HYCLATE
     Indication: Rheumatoid arthritis
     Route: 058
  182. TRIAMCINOLONE ACETONIDE [Suspect]
     Active Substance: TRIAMCINOLONE ACETONIDE
     Indication: Rheumatoid arthritis
     Route: 014
  183. APREMILAST [Suspect]
     Active Substance: APREMILAST
     Indication: Product used for unknown indication
     Route: 048
  184. APREMILAST [Suspect]
     Active Substance: APREMILAST
     Route: 042
  185. APREMILAST [Suspect]
     Active Substance: APREMILAST
  186. APREMILAST [Suspect]
     Active Substance: APREMILAST
     Route: 048
  187. APREMILAST [Suspect]
     Active Substance: APREMILAST
     Route: 042
  188. APREMILAST [Suspect]
     Active Substance: APREMILAST
  189. DILTIAZEM HYDROCHLORIDE [Suspect]
     Active Substance: DILTIAZEM HYDROCHLORIDE
     Indication: Product used for unknown indication
  190. DILTIAZEM HYDROCHLORIDE [Suspect]
     Active Substance: DILTIAZEM HYDROCHLORIDE
     Route: 042
  191. PANTOPRAZOLE [Suspect]
     Active Substance: PANTOPRAZOLE
     Indication: Rheumatoid arthritis
     Route: 048
  192. PANTOPRAZOLE [Suspect]
     Active Substance: PANTOPRAZOLE
     Route: 016
  193. DESOXIMETASONE [Suspect]
     Active Substance: DESOXIMETASONE
     Indication: Rheumatoid arthritis
  194. DESOXIMETASONE [Suspect]
     Active Substance: DESOXIMETASONE
     Route: 048
  195. DESOXIMETASONE [Suspect]
     Active Substance: DESOXIMETASONE
  196. DESOXIMETASONE [Suspect]
     Active Substance: DESOXIMETASONE
     Dosage: 25 MG, QW
     Route: 048
  197. DESOXIMETASONE [Suspect]
     Active Substance: DESOXIMETASONE
     Route: 048
  198. DESOXIMETASONE [Suspect]
     Active Substance: DESOXIMETASONE
  199. DESOXIMETASONE [Suspect]
     Active Substance: DESOXIMETASONE
  200. DESOXIMETASONE [Suspect]
     Active Substance: DESOXIMETASONE
     Route: 058
  201. DESOXIMETASONE [Suspect]
     Active Substance: DESOXIMETASONE
     Route: 058
  202. DESOXIMETASONE [Suspect]
     Active Substance: DESOXIMETASONE
     Route: 048
  203. DESOXIMETASONE [Suspect]
     Active Substance: DESOXIMETASONE
  204. DESOXIMETASONE [Suspect]
     Active Substance: DESOXIMETASONE
     Route: 061
  205. DESOXIMETASONE [Suspect]
     Active Substance: DESOXIMETASONE
     Route: 058
  206. DESOXIMETASONE [Suspect]
     Active Substance: DESOXIMETASONE
     Route: 061
  207. DESOXIMETASONE [Suspect]
     Active Substance: DESOXIMETASONE
     Route: 058
  208. DESOXIMETASONE [Suspect]
     Active Substance: DESOXIMETASONE
  209. DESOXIMETASONE [Suspect]
     Active Substance: DESOXIMETASONE
     Route: 058
  210. DESOXIMETASONE [Suspect]
     Active Substance: DESOXIMETASONE
     Route: 048
  211. DESOXIMETASONE [Suspect]
     Active Substance: DESOXIMETASONE
     Route: 042
  212. DESOXIMETASONE [Suspect]
     Active Substance: DESOXIMETASONE
  213. DESOXIMETASONE [Suspect]
     Active Substance: DESOXIMETASONE
     Route: 048
  214. DESOXIMETASONE [Suspect]
     Active Substance: DESOXIMETASONE
     Route: 061
  215. DESOXIMETASONE [Suspect]
     Active Substance: DESOXIMETASONE
     Route: 067
  216. DESOXIMETASONE [Suspect]
     Active Substance: DESOXIMETASONE
  217. DESOXIMETASONE [Suspect]
     Active Substance: DESOXIMETASONE
     Route: 016
  218. DESOXIMETASONE [Suspect]
     Active Substance: DESOXIMETASONE
  219. DESOXIMETASONE [Suspect]
     Active Substance: DESOXIMETASONE
  220. DESOXIMETASONE [Suspect]
     Active Substance: DESOXIMETASONE
     Route: 048
  221. DESOXIMETASONE [Suspect]
     Active Substance: DESOXIMETASONE
     Route: 067
  222. DESOXIMETASONE [Suspect]
     Active Substance: DESOXIMETASONE
     Route: 067
  223. DESOXIMETASONE [Suspect]
     Active Substance: DESOXIMETASONE
     Route: 048
  224. DESOXIMETASONE [Suspect]
     Active Substance: DESOXIMETASONE
  225. DESOXIMETASONE [Suspect]
     Active Substance: DESOXIMETASONE
     Route: 016
  226. DESOXIMETASONE [Suspect]
     Active Substance: DESOXIMETASONE
  227. DESOXIMETASONE [Suspect]
     Active Substance: DESOXIMETASONE
  228. DESOXIMETASONE [Suspect]
     Active Substance: DESOXIMETASONE
  229. DESOXIMETASONE [Suspect]
     Active Substance: DESOXIMETASONE
  230. DESOXIMETASONE [Suspect]
     Active Substance: DESOXIMETASONE
  231. DESOXIMETASONE [Suspect]
     Active Substance: DESOXIMETASONE
     Route: 058
  232. DESOXIMETASONE [Suspect]
     Active Substance: DESOXIMETASONE
     Route: 058
  233. CHLORAPREP [Suspect]
     Active Substance: CHLORHEXIDINE GLUCONATE\ISOPROPYL ALCOHOL
     Indication: Product used for unknown indication
  234. CHLORAPREP [Suspect]
     Active Substance: CHLORHEXIDINE GLUCONATE\ISOPROPYL ALCOHOL
     Indication: Rheumatoid arthritis
     Route: 048
  235. CHLORAPREP [Suspect]
     Active Substance: CHLORHEXIDINE GLUCONATE\ISOPROPYL ALCOHOL
  236. CHLORAPREP [Suspect]
     Active Substance: CHLORHEXIDINE GLUCONATE\ISOPROPYL ALCOHOL
  237. CHLORAPREP [Suspect]
     Active Substance: CHLORHEXIDINE GLUCONATE\ISOPROPYL ALCOHOL
  238. ACTEMRA [Suspect]
     Active Substance: TOCILIZUMAB
     Indication: Rheumatoid arthritis
     Route: 048
  239. ACTEMRA [Suspect]
     Active Substance: TOCILIZUMAB
     Route: 058
  240. ACTEMRA [Suspect]
     Active Substance: TOCILIZUMAB
     Route: 058
  241. ACTEMRA [Suspect]
     Active Substance: TOCILIZUMAB
     Route: 042
  242. ACTEMRA [Suspect]
     Active Substance: TOCILIZUMAB
     Route: 042
  243. ACTEMRA [Suspect]
     Active Substance: TOCILIZUMAB
     Route: 065
  244. ACTEMRA [Suspect]
     Active Substance: TOCILIZUMAB
     Route: 042
  245. ACTEMRA [Suspect]
     Active Substance: TOCILIZUMAB
     Route: 058
  246. ACTEMRA [Suspect]
     Active Substance: TOCILIZUMAB
     Route: 061
  247. ACTEMRA [Suspect]
     Active Substance: TOCILIZUMAB
     Route: 065
  248. ACTEMRA [Suspect]
     Active Substance: TOCILIZUMAB
     Route: 016
  249. ACTEMRA [Suspect]
     Active Substance: TOCILIZUMAB
  250. ACTEMRA [Suspect]
     Active Substance: TOCILIZUMAB
     Route: 042
  251. ACTEMRA [Suspect]
     Active Substance: TOCILIZUMAB
     Route: 016
  252. ACTEMRA [Suspect]
     Active Substance: TOCILIZUMAB
     Route: 016
  253. ACTEMRA [Suspect]
     Active Substance: TOCILIZUMAB
     Route: 048
  254. ACTEMRA [Suspect]
     Active Substance: TOCILIZUMAB
     Route: 042
  255. ACTEMRA [Suspect]
     Active Substance: TOCILIZUMAB
     Route: 042
  256. ACTEMRA [Suspect]
     Active Substance: TOCILIZUMAB
     Route: 042
  257. ACTEMRA [Suspect]
     Active Substance: TOCILIZUMAB
     Route: 042
  258. ACTEMRA [Suspect]
     Active Substance: TOCILIZUMAB
     Route: 042
  259. ACTEMRA [Suspect]
     Active Substance: TOCILIZUMAB
  260. ACTEMRA [Suspect]
     Active Substance: TOCILIZUMAB
     Route: 058
  261. ACTEMRA [Suspect]
     Active Substance: TOCILIZUMAB
     Route: 042
  262. ACTEMRA [Suspect]
     Active Substance: TOCILIZUMAB
  263. ACTEMRA [Suspect]
     Active Substance: TOCILIZUMAB
  264. ACTEMRA [Suspect]
     Active Substance: TOCILIZUMAB
     Route: 042
  265. ACTEMRA [Suspect]
     Active Substance: TOCILIZUMAB
     Route: 042
  266. ACTEMRA [Suspect]
     Active Substance: TOCILIZUMAB
     Route: 042
  267. ACTEMRA [Suspect]
     Active Substance: TOCILIZUMAB
     Route: 042
  268. ACTEMRA [Suspect]
     Active Substance: TOCILIZUMAB
     Route: 058
  269. ACTEMRA [Suspect]
     Active Substance: TOCILIZUMAB
  270. ACTEMRA [Suspect]
     Active Substance: TOCILIZUMAB
  271. ACTEMRA [Suspect]
     Active Substance: TOCILIZUMAB
  272. PREDNISONE [Suspect]
     Active Substance: PREDNISONE
     Indication: Systemic lupus erythematosus
  273. PREDNISONE [Suspect]
     Active Substance: PREDNISONE
     Indication: Synovitis
  274. PREDNISONE [Suspect]
     Active Substance: PREDNISONE
     Indication: Rheumatoid arthritis
     Route: 048
  275. PREDNISONE [Suspect]
     Active Substance: PREDNISONE
     Indication: Psoriatic arthropathy
  276. PREDNISONE [Suspect]
     Active Substance: PREDNISONE
     Indication: Pemphigus
  277. PREDNISONE [Suspect]
     Active Substance: PREDNISONE
     Indication: Inflammation
  278. PREDNISONE [Suspect]
     Active Substance: PREDNISONE
     Indication: Bursitis
     Route: 048
  279. PREDNISONE [Suspect]
     Active Substance: PREDNISONE
     Indication: Product used for unknown indication
     Route: 048
  280. PREDNISONE [Suspect]
     Active Substance: PREDNISONE
     Route: 048
  281. ASACOL [Suspect]
     Active Substance: MESALAMINE
     Indication: Product used for unknown indication
  282. ASACOL [Suspect]
     Active Substance: MESALAMINE
     Indication: Crohn^s disease
  283. CELEBREX [Suspect]
     Active Substance: CELECOXIB
     Indication: Rheumatoid arthritis
     Route: 048
  284. CELEBREX [Suspect]
     Active Substance: CELECOXIB
     Indication: Arthritis
     Route: 048
  285. CELEBREX [Suspect]
     Active Substance: CELECOXIB
  286. CELEBREX [Suspect]
     Active Substance: CELECOXIB
  287. CELEBREX [Suspect]
     Active Substance: CELECOXIB
  288. CELEBREX [Suspect]
     Active Substance: CELECOXIB
     Route: 048
  289. CELEBREX [Suspect]
     Active Substance: CELECOXIB
     Route: 048
  290. CELEBREX [Suspect]
     Active Substance: CELECOXIB
  291. CELEBREX [Suspect]
     Active Substance: CELECOXIB
     Route: 048
  292. CETIRIZINE HYDROCHLORIDE [Suspect]
     Active Substance: CETIRIZINE HYDROCHLORIDE
     Indication: Rheumatoid arthritis
  293. CETIRIZINE HYDROCHLORIDE [Suspect]
     Active Substance: CETIRIZINE HYDROCHLORIDE
     Indication: Product used for unknown indication
  294. CETIRIZINE HYDROCHLORIDE [Suspect]
     Active Substance: CETIRIZINE HYDROCHLORIDE
     Indication: Off label use
     Route: 048
  295. CETIRIZINE HYDROCHLORIDE [Suspect]
     Active Substance: CETIRIZINE HYDROCHLORIDE
     Route: 048
  296. CETIRIZINE HYDROCHLORIDE [Suspect]
     Active Substance: CETIRIZINE HYDROCHLORIDE
     Route: 048
  297. CETIRIZINE HYDROCHLORIDE [Suspect]
     Active Substance: CETIRIZINE HYDROCHLORIDE
     Route: 048
  298. CETIRIZINE HYDROCHLORIDE [Suspect]
     Active Substance: CETIRIZINE HYDROCHLORIDE
     Route: 048
  299. CETIRIZINE HYDROCHLORIDE [Suspect]
     Active Substance: CETIRIZINE HYDROCHLORIDE
  300. CIMZIA [Suspect]
     Active Substance: CERTOLIZUMAB PEGOL
     Indication: Rheumatoid arthritis
  301. CIMZIA [Suspect]
     Active Substance: CERTOLIZUMAB PEGOL
     Indication: Psoriatic arthropathy
  302. CIMZIA [Suspect]
     Active Substance: CERTOLIZUMAB PEGOL
     Indication: Psoriasis
  303. CIMZIA [Suspect]
     Active Substance: CERTOLIZUMAB PEGOL
     Route: 058
  304. CIMZIA [Suspect]
     Active Substance: CERTOLIZUMAB PEGOL
     Route: 042
  305. CIMZIA [Suspect]
     Active Substance: CERTOLIZUMAB PEGOL
     Route: 058
  306. CIMZIA [Suspect]
     Active Substance: CERTOLIZUMAB PEGOL
  307. CIMZIA [Suspect]
     Active Substance: CERTOLIZUMAB PEGOL
     Route: 058
  308. CIMZIA [Suspect]
     Active Substance: CERTOLIZUMAB PEGOL
  309. CIMZIA [Suspect]
     Active Substance: CERTOLIZUMAB PEGOL
     Route: 058
  310. CIMZIA [Suspect]
     Active Substance: CERTOLIZUMAB PEGOL
     Route: 058
  311. CIMZIA [Suspect]
     Active Substance: CERTOLIZUMAB PEGOL
     Route: 005
  312. CIMZIA [Suspect]
     Active Substance: CERTOLIZUMAB PEGOL
     Route: 058
  313. CIMZIA [Suspect]
     Active Substance: CERTOLIZUMAB PEGOL
     Route: 058
  314. CIMZIA [Suspect]
     Active Substance: CERTOLIZUMAB PEGOL
     Route: 058
  315. TYLENOL WITH CODEINE [Suspect]
     Active Substance: ACETAMINOPHEN\CODEINE PHOSPHATE
     Indication: Rheumatoid arthritis
  316. ENBREL [Suspect]
     Active Substance: ETANERCEPT
     Indication: Rheumatoid arthritis
  317. ENBREL [Suspect]
     Active Substance: ETANERCEPT
     Indication: Psoriatic arthropathy
  318. ENBREL [Suspect]
     Active Substance: ETANERCEPT
     Dosage: UNK
     Route: 058
  319. ENBREL [Suspect]
     Active Substance: ETANERCEPT
     Route: 058
  320. ENBREL [Suspect]
     Active Substance: ETANERCEPT
     Route: 058
  321. ENBREL [Suspect]
     Active Substance: ETANERCEPT
  322. ENBREL [Suspect]
     Active Substance: ETANERCEPT
     Route: 058
  323. ENBREL [Suspect]
     Active Substance: ETANERCEPT
     Route: 058
  324. ENBREL [Suspect]
     Active Substance: ETANERCEPT
     Dosage: UNK
     Route: 058
  325. ENBREL [Suspect]
     Active Substance: ETANERCEPT
     Route: 058
  326. ENBREL [Suspect]
     Active Substance: ETANERCEPT
     Route: 058
  327. ENBREL [Suspect]
     Active Substance: ETANERCEPT
     Route: 058
  328. ENBREL [Suspect]
     Active Substance: ETANERCEPT
     Dosage: UNK
     Route: 058
  329. ENBREL [Suspect]
     Active Substance: ETANERCEPT
     Dosage: UNK
     Route: 058
  330. FLUMETHASONE PIVALATE [Suspect]
     Active Substance: FLUMETHASONE PIVALATE
     Indication: Rheumatoid arthritis
     Route: 003
  331. FLUMETHASONE PIVALATE [Suspect]
     Active Substance: FLUMETHASONE PIVALATE
     Route: 058
  332. FLUMETHASONE PIVALATE [Suspect]
     Active Substance: FLUMETHASONE PIVALATE
  333. FLUMETHASONE PIVALATE [Suspect]
     Active Substance: FLUMETHASONE PIVALATE
  334. ENTYVIO [Suspect]
     Active Substance: VEDOLIZUMAB
     Indication: Product used for unknown indication
  335. FOSAMAX [Suspect]
     Active Substance: ALENDRONATE SODIUM
     Indication: Rheumatoid arthritis
  336. FOSAMAX [Suspect]
     Active Substance: ALENDRONATE SODIUM
     Route: 048
  337. FOSAMAX [Suspect]
     Active Substance: ALENDRONATE SODIUM
     Route: 048
  338. FOSAMAX [Suspect]
     Active Substance: ALENDRONATE SODIUM
  339. FOSAMAX [Suspect]
     Active Substance: ALENDRONATE SODIUM
     Route: 048
  340. FOSAMAX [Suspect]
     Active Substance: ALENDRONATE SODIUM
     Route: 005
  341. FOSAMAX [Suspect]
     Active Substance: ALENDRONATE SODIUM
     Route: 005
  342. FOSAMAX [Suspect]
     Active Substance: ALENDRONATE SODIUM
  343. FOSAMAX [Suspect]
     Active Substance: ALENDRONATE SODIUM
     Route: 048
  344. FOSAMAX [Suspect]
     Active Substance: ALENDRONATE SODIUM
     Route: 048
  345. FOSAMAX [Suspect]
     Active Substance: ALENDRONATE SODIUM
     Route: 058
  346. FOSAMAX [Suspect]
     Active Substance: ALENDRONATE SODIUM
     Route: 016
  347. FOSAMAX [Suspect]
     Active Substance: ALENDRONATE SODIUM
     Route: 048
  348. FOSAMAX [Suspect]
     Active Substance: ALENDRONATE SODIUM
  349. FOSAMAX [Suspect]
     Active Substance: ALENDRONATE SODIUM
  350. FOSAMAX [Suspect]
     Active Substance: ALENDRONATE SODIUM
     Route: 016
  351. HYDROXYCHLOROQUINE [Suspect]
     Active Substance: HYDROXYCHLOROQUINE
     Indication: Rheumatoid arthritis
     Route: 058
  352. HYDROXYCHLOROQUINE [Suspect]
     Active Substance: HYDROXYCHLOROQUINE
     Route: 048
  353. HYDROXYCHLOROQUINE [Suspect]
     Active Substance: HYDROXYCHLOROQUINE
  354. HYDROXYCHLOROQUINE [Suspect]
     Active Substance: HYDROXYCHLOROQUINE
  355. HYDROXYCHLOROQUINE [Suspect]
     Active Substance: HYDROXYCHLOROQUINE
  356. HYDROXYCHLOROQUINE [Suspect]
     Active Substance: HYDROXYCHLOROQUINE
     Route: 048
  357. HYDROXYCHLOROQUINE [Suspect]
     Active Substance: HYDROXYCHLOROQUINE
  358. HYDROXYCHLOROQUINE [Suspect]
     Active Substance: HYDROXYCHLOROQUINE
     Route: 048
  359. HYDROXYCHLOROQUINE [Suspect]
     Active Substance: HYDROXYCHLOROQUINE
     Route: 048
  360. HYDROXYCHLOROQUINE [Suspect]
     Active Substance: HYDROXYCHLOROQUINE
  361. HYDROXYCHLOROQUINE [Suspect]
     Active Substance: HYDROXYCHLOROQUINE
     Route: 048
  362. HYDROXYCHLOROQUINE [Suspect]
     Active Substance: HYDROXYCHLOROQUINE
  363. HYDROXYCHLOROQUINE [Suspect]
     Active Substance: HYDROXYCHLOROQUINE
  364. HYDROXYCHLOROQUINE [Suspect]
     Active Substance: HYDROXYCHLOROQUINE
     Route: 048
  365. HYDROXYCHLOROQUINE [Suspect]
     Active Substance: HYDROXYCHLOROQUINE
  366. HYDROXYCHLOROQUINE [Suspect]
     Active Substance: HYDROXYCHLOROQUINE
  367. HYDROXYCHLOROQUINE [Suspect]
     Active Substance: HYDROXYCHLOROQUINE
     Route: 048
  368. HYDROXYCHLOROQUINE [Suspect]
     Active Substance: HYDROXYCHLOROQUINE
  369. HYDROXYCHLOROQUINE [Suspect]
     Active Substance: HYDROXYCHLOROQUINE
  370. HYDROXYCHLOROQUINE [Suspect]
     Active Substance: HYDROXYCHLOROQUINE
  371. HYDROXYCHLOROQUINE [Suspect]
     Active Substance: HYDROXYCHLOROQUINE
  372. HYDROXYCHLOROQUINE [Suspect]
     Active Substance: HYDROXYCHLOROQUINE
  373. HYDROXYCHLOROQUINE [Suspect]
     Active Substance: HYDROXYCHLOROQUINE
     Route: 048
  374. HYDROXYCHLOROQUINE [Suspect]
     Active Substance: HYDROXYCHLOROQUINE
     Route: 005
  375. HYDROXYCHLOROQUINE [Suspect]
     Active Substance: HYDROXYCHLOROQUINE
  376. HYDROXYCHLOROQUINE [Suspect]
     Active Substance: HYDROXYCHLOROQUINE
     Route: 048
  377. HYDROXYCHLOROQUINE [Suspect]
     Active Substance: HYDROXYCHLOROQUINE
     Route: 016
  378. HYDROXYCHLOROQUINE [Suspect]
     Active Substance: HYDROXYCHLOROQUINE
     Dosage: UNK, QD
  379. HYDROXYCHLOROQUINE [Suspect]
     Active Substance: HYDROXYCHLOROQUINE
     Route: 048
  380. HYDROXYCHLOROQUINE [Suspect]
     Active Substance: HYDROXYCHLOROQUINE
     Route: 048
  381. HYDROXYCHLOROQUINE [Suspect]
     Active Substance: HYDROXYCHLOROQUINE
  382. HYDROXYCHLOROQUINE [Suspect]
     Active Substance: HYDROXYCHLOROQUINE
  383. HYDROXYCHLOROQUINE [Suspect]
     Active Substance: HYDROXYCHLOROQUINE
  384. HYDROCORTISONE SODIUM SUCCINATE [Suspect]
     Active Substance: HYDROCORTISONE SODIUM SUCCINATE
     Indication: Rheumatoid arthritis
  385. HYDROCORTISONE SODIUM SUCCINATE [Suspect]
     Active Substance: HYDROCORTISONE SODIUM SUCCINATE
  386. HYDROCORTISONE SODIUM SUCCINATE [Suspect]
     Active Substance: HYDROCORTISONE SODIUM SUCCINATE
     Route: 058
  387. HYDROCORTISONE SODIUM SUCCINATE [Suspect]
     Active Substance: HYDROCORTISONE SODIUM SUCCINATE
  388. HYDROCORTISONE SODIUM SUCCINATE [Suspect]
     Active Substance: HYDROCORTISONE SODIUM SUCCINATE
     Route: 058
  389. HYDROCORTISONE SODIUM SUCCINATE [Suspect]
     Active Substance: HYDROCORTISONE SODIUM SUCCINATE
  390. HYDROCORTISONE SODIUM SUCCINATE [Suspect]
     Active Substance: HYDROCORTISONE SODIUM SUCCINATE
  391. HYDROCORTISONE SODIUM SUCCINATE [Suspect]
     Active Substance: HYDROCORTISONE SODIUM SUCCINATE
     Route: 048
  392. HYDROCORTISONE SODIUM SUCCINATE [Suspect]
     Active Substance: HYDROCORTISONE SODIUM SUCCINATE
  393. HYDROCORTISONE SODIUM SUCCINATE [Suspect]
     Active Substance: HYDROCORTISONE SODIUM SUCCINATE
  394. HYDROCORTISONE SODIUM SUCCINATE [Suspect]
     Active Substance: HYDROCORTISONE SODIUM SUCCINATE
     Route: 061
  395. HYDROCORTISONE SODIUM SUCCINATE [Suspect]
     Active Substance: HYDROCORTISONE SODIUM SUCCINATE
     Route: 061
  396. CHOLECALCIFEROL [Suspect]
     Active Substance: CHOLECALCIFEROL
     Indication: Rheumatoid arthritis
  397. CHOLECALCIFEROL [Suspect]
     Active Substance: CHOLECALCIFEROL
     Indication: Product used for unknown indication
  398. CHLORHEXIDINE GLUCONATE [Suspect]
     Active Substance: CHLORHEXIDINE GLUCONATE
     Indication: Product used for unknown indication
  399. CHLORHEXIDINE GLUCONATE [Suspect]
     Active Substance: CHLORHEXIDINE GLUCONATE
     Indication: Rheumatoid arthritis
  400. CHLORHEXIDINE GLUCONATE [Suspect]
     Active Substance: CHLORHEXIDINE GLUCONATE
     Route: 048
  401. CHLORHEXIDINE GLUCONATE [Suspect]
     Active Substance: CHLORHEXIDINE GLUCONATE
  402. CHLORHEXIDINE GLUCONATE [Suspect]
     Active Substance: CHLORHEXIDINE GLUCONATE
  403. CHLORHEXIDINE GLUCONATE [Suspect]
     Active Substance: CHLORHEXIDINE GLUCONATE
     Route: 061
  404. CHLORHEXIDINE GLUCONATE [Suspect]
     Active Substance: CHLORHEXIDINE GLUCONATE
  405. CHLORHEXIDINE GLUCONATE [Suspect]
     Active Substance: CHLORHEXIDINE GLUCONATE
  406. CHLORHEXIDINE GLUCONATE [Suspect]
     Active Substance: CHLORHEXIDINE GLUCONATE
     Route: 061
  407. CHLORHEXIDINE GLUCONATE [Suspect]
     Active Substance: CHLORHEXIDINE GLUCONATE
     Route: 058
  408. CALCIUM GLUBIONATE [Suspect]
     Active Substance: CALCIUM GLUBIONATE
     Indication: Product used for unknown indication
  409. CALCIUM GLUBIONATE [Suspect]
     Active Substance: CALCIUM GLUBIONATE
  410. CALCIUM GLUBIONATE [Suspect]
     Active Substance: CALCIUM GLUBIONATE
     Route: 016
  411. CORTISONE ACETATE [Suspect]
     Active Substance: CORTISONE ACETATE
     Indication: Rheumatoid arthritis
  412. CORTISONE ACETATE [Suspect]
     Active Substance: CORTISONE ACETATE
     Route: 061
  413. CORTISONE ACETATE [Suspect]
     Active Substance: CORTISONE ACETATE
     Route: 061
  414. CORTISONE ACETATE [Suspect]
     Active Substance: CORTISONE ACETATE
  415. CORTISONE ACETATE [Suspect]
     Active Substance: CORTISONE ACETATE
     Route: 048
  416. CORTISONE ACETATE [Suspect]
     Active Substance: CORTISONE ACETATE
     Route: 048
  417. CORTISONE ACETATE [Suspect]
     Active Substance: CORTISONE ACETATE
  418. CORTISONE ACETATE [Suspect]
     Active Substance: CORTISONE ACETATE
  419. CORTISONE ACETATE [Suspect]
     Active Substance: CORTISONE ACETATE
  420. CORTISONE ACETATE [Suspect]
     Active Substance: CORTISONE ACETATE
  421. GOLIMUMAB [Suspect]
     Active Substance: GOLIMUMAB
     Indication: Rheumatoid arthritis
  422. GOLIMUMAB [Suspect]
     Active Substance: GOLIMUMAB
     Route: 058
  423. HUMIRA [Suspect]
     Active Substance: ADALIMUMAB
     Indication: Rheumatoid arthritis
  424. HUMIRA [Suspect]
     Active Substance: ADALIMUMAB
     Indication: Psoriatic arthropathy
     Route: 058
  425. HUMIRA [Suspect]
     Active Substance: ADALIMUMAB
  426. HUMIRA [Suspect]
     Active Substance: ADALIMUMAB
     Route: 058
  427. HUMIRA [Suspect]
     Active Substance: ADALIMUMAB
     Route: 058
  428. HUMIRA [Suspect]
     Active Substance: ADALIMUMAB
     Route: 058
  429. HUMIRA [Suspect]
     Active Substance: ADALIMUMAB
     Route: 058
  430. HUMIRA [Suspect]
     Active Substance: ADALIMUMAB
     Route: 058
  431. LYRICA [Suspect]
     Active Substance: PREGABALIN
     Indication: Product used for unknown indication
  432. LYRICA [Suspect]
     Active Substance: PREGABALIN
     Route: 048
  433. NAPROXEN SODIUM [Suspect]
     Active Substance: NAPROXEN SODIUM
     Indication: Rheumatoid arthritis
  434. NAPROXEN SODIUM [Suspect]
     Active Substance: NAPROXEN SODIUM
     Indication: Product used for unknown indication
  435. ONEALFA [Suspect]
     Active Substance: ALFACALCIDOL
     Indication: Product used for unknown indication
  436. ORENCIA [Suspect]
     Active Substance: ABATACEPT
     Indication: Rheumatoid arthritis
  437. ORENCIA [Suspect]
     Active Substance: ABATACEPT
  438. ORENCIA [Suspect]
     Active Substance: ABATACEPT
     Route: 058
  439. ORENCIA [Suspect]
     Active Substance: ABATACEPT
     Route: 058
  440. ORENCIA [Suspect]
     Active Substance: ABATACEPT
     Route: 042
  441. ORENCIA [Suspect]
     Active Substance: ABATACEPT
     Route: 048
  442. ORENCIA [Suspect]
     Active Substance: ABATACEPT
     Route: 048
  443. ORENCIA [Suspect]
     Active Substance: ABATACEPT
     Route: 048
  444. ORENCIA [Suspect]
     Active Substance: ABATACEPT
     Route: 058
  445. ORENCIA [Suspect]
     Active Substance: ABATACEPT
     Route: 042
  446. ORENCIA [Suspect]
     Active Substance: ABATACEPT
     Route: 042
  447. ORENCIA [Suspect]
     Active Substance: ABATACEPT
     Route: 042
  448. ORENCIA [Suspect]
     Active Substance: ABATACEPT
     Route: 058
  449. ORENCIA [Suspect]
     Active Substance: ABATACEPT
     Route: 058
  450. ORENCIA [Suspect]
     Active Substance: ABATACEPT
     Route: 058
  451. ORENCIA [Suspect]
     Active Substance: ABATACEPT
     Route: 058
  452. ORENCIA [Suspect]
     Active Substance: ABATACEPT
  453. ORENCIA [Suspect]
     Active Substance: ABATACEPT
  454. PERIOGARD [Suspect]
     Active Substance: CHLORHEXIDINE GLUCONATE
     Indication: Product used for unknown indication
  455. PERIOGARD [Suspect]
     Active Substance: CHLORHEXIDINE GLUCONATE
     Route: 048
  456. PERIOGARD [Suspect]
     Active Substance: CHLORHEXIDINE GLUCONATE
     Route: 002
  457. PERIOGARD [Suspect]
     Active Substance: CHLORHEXIDINE GLUCONATE
     Dosage: 2 DOSAGE FORM, QD (1 DF, BID)
  458. PHTHALYLSULFATHIAZOLE [Suspect]
     Active Substance: PHTHALYLSULFATHIAZOLE
     Indication: Rheumatoid arthritis
     Route: 048
  459. PHTHALYLSULFATHIAZOLE [Suspect]
     Active Substance: PHTHALYLSULFATHIAZOLE
     Route: 048
  460. PHTHALYLSULFATHIAZOLE [Suspect]
     Active Substance: PHTHALYLSULFATHIAZOLE
     Route: 048
  461. PHTHALYLSULFATHIAZOLE [Suspect]
     Active Substance: PHTHALYLSULFATHIAZOLE
     Route: 058
  462. PHTHALYLSULFATHIAZOLE [Suspect]
     Active Substance: PHTHALYLSULFATHIAZOLE
     Route: 016
  463. PHTHALYLSULFATHIAZOLE [Suspect]
     Active Substance: PHTHALYLSULFATHIAZOLE
     Route: 048
  464. PHTHALYLSULFATHIAZOLE [Suspect]
     Active Substance: PHTHALYLSULFATHIAZOLE
     Route: 048
  465. PHTHALYLSULFATHIAZOLE [Suspect]
     Active Substance: PHTHALYLSULFATHIAZOLE
     Route: 048
  466. PHTHALYLSULFATHIAZOLE [Suspect]
     Active Substance: PHTHALYLSULFATHIAZOLE
     Dosage: 2000 MG, QD (1000 MG, BID)
     Route: 048
  467. PHTHALYLSULFATHIAZOLE [Suspect]
     Active Substance: PHTHALYLSULFATHIAZOLE
     Route: 048
  468. PHTHALYLSULFATHIAZOLE [Suspect]
     Active Substance: PHTHALYLSULFATHIAZOLE
     Route: 042
  469. PHTHALYLSULFATHIAZOLE [Suspect]
     Active Substance: PHTHALYLSULFATHIAZOLE
     Route: 042
  470. PHTHALYLSULFATHIAZOLE [Suspect]
     Active Substance: PHTHALYLSULFATHIAZOLE
  471. PHTHALYLSULFATHIAZOLE [Suspect]
     Active Substance: PHTHALYLSULFATHIAZOLE
  472. PHTHALYLSULFATHIAZOLE [Suspect]
     Active Substance: PHTHALYLSULFATHIAZOLE
     Route: 048
  473. PSEUDOEPHEDRINE HYDROCHLORIDE [Suspect]
     Active Substance: PSEUDOEPHEDRINE HYDROCHLORIDE
     Indication: Product used for unknown indication
  474. PSEUDOEPHEDRINE HYDROCHLORIDE [Suspect]
     Active Substance: PSEUDOEPHEDRINE HYDROCHLORIDE
  475. PSEUDOEPHEDRINE HYDROCHLORIDE [Suspect]
     Active Substance: PSEUDOEPHEDRINE HYDROCHLORIDE
  476. PSEUDOEPHEDRINE HYDROCHLORIDE [Suspect]
     Active Substance: PSEUDOEPHEDRINE HYDROCHLORIDE
  477. PSEUDOEPHEDRINE HYDROCHLORIDE [Suspect]
     Active Substance: PSEUDOEPHEDRINE HYDROCHLORIDE
  478. CETIRIZINE HYDROCHLORIDE [Suspect]
     Active Substance: CETIRIZINE HYDROCHLORIDE
     Indication: Rheumatoid arthritis
     Route: 048
  479. CETIRIZINE HYDROCHLORIDE [Suspect]
     Active Substance: CETIRIZINE HYDROCHLORIDE
     Indication: Urticaria
     Route: 016
  480. CETIRIZINE HYDROCHLORIDE [Suspect]
     Active Substance: CETIRIZINE HYDROCHLORIDE
     Indication: Off label use
  481. CETIRIZINE HYDROCHLORIDE [Suspect]
     Active Substance: CETIRIZINE HYDROCHLORIDE
     Route: 048
  482. CETIRIZINE HYDROCHLORIDE [Suspect]
     Active Substance: CETIRIZINE HYDROCHLORIDE
  483. CETIRIZINE HYDROCHLORIDE [Suspect]
     Active Substance: CETIRIZINE HYDROCHLORIDE
     Route: 048
  484. CETIRIZINE HYDROCHLORIDE [Suspect]
     Active Substance: CETIRIZINE HYDROCHLORIDE
     Route: 005
  485. CETIRIZINE HYDROCHLORIDE [Suspect]
     Active Substance: CETIRIZINE HYDROCHLORIDE
     Route: 042
  486. CETIRIZINE HYDROCHLORIDE [Suspect]
     Active Substance: CETIRIZINE HYDROCHLORIDE
  487. CETIRIZINE HYDROCHLORIDE [Suspect]
     Active Substance: CETIRIZINE HYDROCHLORIDE
     Route: 048
  488. CETIRIZINE HYDROCHLORIDE\PSEUDOEPHEDRINE HYDROCHLORIDE [Suspect]
     Active Substance: CETIRIZINE HYDROCHLORIDE\PSEUDOEPHEDRINE HYDROCHLORIDE
     Indication: Rheumatoid arthritis
  489. CETIRIZINE HYDROCHLORIDE\PSEUDOEPHEDRINE HYDROCHLORIDE [Suspect]
     Active Substance: CETIRIZINE HYDROCHLORIDE\PSEUDOEPHEDRINE HYDROCHLORIDE
     Route: 048
  490. CETIRIZINE HYDROCHLORIDE\PSEUDOEPHEDRINE HYDROCHLORIDE [Suspect]
     Active Substance: CETIRIZINE HYDROCHLORIDE\PSEUDOEPHEDRINE HYDROCHLORIDE
  491. CETIRIZINE HYDROCHLORIDE\PSEUDOEPHEDRINE HYDROCHLORIDE [Suspect]
     Active Substance: CETIRIZINE HYDROCHLORIDE\PSEUDOEPHEDRINE HYDROCHLORIDE
  492. CETIRIZINE HYDROCHLORIDE\PSEUDOEPHEDRINE HYDROCHLORIDE [Suspect]
     Active Substance: CETIRIZINE HYDROCHLORIDE\PSEUDOEPHEDRINE HYDROCHLORIDE
  493. REMICADE [Suspect]
     Active Substance: INFLIXIMAB
     Indication: Rheumatoid arthritis
     Route: 042
  494. REMICADE [Suspect]
     Active Substance: INFLIXIMAB
     Indication: Psoriatic arthropathy
     Route: 042
  495. REMICADE [Suspect]
     Active Substance: INFLIXIMAB
     Indication: Crohn^s disease
  496. REMICADE [Suspect]
     Active Substance: INFLIXIMAB
     Indication: Colitis ulcerative
  497. REMICADE [Suspect]
     Active Substance: INFLIXIMAB
     Indication: Ankylosing spondylitis
     Route: 042
  498. XELJANZ [Suspect]
     Active Substance: TOFACITINIB CITRATE
     Indication: Rheumatoid arthritis
  499. XELJANZ [Suspect]
     Active Substance: TOFACITINIB CITRATE
  500. XELJANZ [Suspect]
     Active Substance: TOFACITINIB CITRATE
     Route: 048
  501. XELJANZ [Suspect]
     Active Substance: TOFACITINIB CITRATE
  502. XELJANZ [Suspect]
     Active Substance: TOFACITINIB CITRATE
  503. XELJANZ [Suspect]
     Active Substance: TOFACITINIB CITRATE
     Route: 048
  504. XELJANZ [Suspect]
     Active Substance: TOFACITINIB CITRATE
  505. XELJANZ [Suspect]
     Active Substance: TOFACITINIB CITRATE
  506. XELJANZ [Suspect]
     Active Substance: TOFACITINIB CITRATE
  507. XELJANZ [Suspect]
     Active Substance: TOFACITINIB CITRATE
  508. SIMPONI [Suspect]
     Active Substance: GOLIMUMAB
     Indication: Rheumatoid arthritis
  509. SIMPONI [Suspect]
     Active Substance: GOLIMUMAB
     Route: 058
  510. SIMPONI [Suspect]
     Active Substance: GOLIMUMAB
     Route: 052
  511. SIMPONI [Suspect]
     Active Substance: GOLIMUMAB
     Route: 058
  512. SIMPONI [Suspect]
     Active Substance: GOLIMUMAB
     Route: 042
  513. STELARA [Suspect]
     Active Substance: USTEKINUMAB
     Indication: Rheumatoid arthritis
  514. STELARA [Suspect]
     Active Substance: USTEKINUMAB
     Route: 058
  515. STELARA [Suspect]
     Active Substance: USTEKINUMAB
     Route: 042
  516. STELARA [Suspect]
     Active Substance: USTEKINUMAB
     Route: 058
  517. STELARA [Suspect]
     Active Substance: USTEKINUMAB
     Route: 042
  518. STELARA [Suspect]
     Active Substance: USTEKINUMAB
     Route: 058
  519. STELARA [Suspect]
     Active Substance: USTEKINUMAB
     Route: 058
  520. STELARA [Suspect]
     Active Substance: USTEKINUMAB
  521. SULFAMETHOXAZOLE [Suspect]
     Active Substance: SULFAMETHOXAZOLE
     Indication: Rheumatoid arthritis
  522. SULFAMETHOXAZOLE AND TRIMETHOPRIM [Suspect]
     Active Substance: SULFAMETHOXAZOLE\TRIMETHOPRIM
     Indication: Product used for unknown indication
  523. SULFAMETHOXAZOLE AND TRIMETHOPRIM [Suspect]
     Active Substance: SULFAMETHOXAZOLE\TRIMETHOPRIM
  524. SULFAMETHOXAZOLE AND TRIMETHOPRIM [Suspect]
     Active Substance: SULFAMETHOXAZOLE\TRIMETHOPRIM
  525. SULFAMETHOXAZOLE AND TRIMETHOPRIM [Suspect]
     Active Substance: SULFAMETHOXAZOLE\TRIMETHOPRIM
     Route: 067
  526. SULFASALAZINE [Suspect]
     Active Substance: SULFASALAZINE
     Indication: Product used for unknown indication
     Route: 048
  527. SULFASALAZINE [Suspect]
     Active Substance: SULFASALAZINE
  528. SULFASALAZINE [Suspect]
     Active Substance: SULFASALAZINE
     Route: 048
  529. SULFASALAZINE [Suspect]
     Active Substance: SULFASALAZINE
     Dosage: 400 MG (1 EVERY 1 DAYS)
     Route: 048
  530. SULFASALAZINE [Suspect]
     Active Substance: SULFASALAZINE
     Route: 058
  531. SULFASALAZINE [Suspect]
     Active Substance: SULFASALAZINE
  532. SULFASALAZINE [Suspect]
     Active Substance: SULFASALAZINE
     Route: 048
  533. SULFASALAZINE [Suspect]
     Active Substance: SULFASALAZINE
     Route: 058
  534. SULFASALAZINE [Suspect]
     Active Substance: SULFASALAZINE
     Route: 058
  535. SULFASALAZINE [Suspect]
     Active Substance: SULFASALAZINE
     Route: 048
  536. SULFASALAZINE [Suspect]
     Active Substance: SULFASALAZINE
     Route: 048
  537. SULFASALAZINE [Suspect]
     Active Substance: SULFASALAZINE
     Route: 048
  538. SULFASALAZINE [Suspect]
     Active Substance: SULFASALAZINE
     Route: 048
  539. SULFASALAZINE [Suspect]
     Active Substance: SULFASALAZINE
     Route: 048
  540. SULFASALAZINE [Suspect]
     Active Substance: SULFASALAZINE
     Route: 048
  541. SULFASALAZINE [Suspect]
     Active Substance: SULFASALAZINE
     Route: 048
  542. SULFASALAZINE [Suspect]
     Active Substance: SULFASALAZINE
     Route: 048
  543. SULFASALAZINE [Suspect]
     Active Substance: SULFASALAZINE
     Dosage: 1000 MG (1 EVERY 1 DAYS)
  544. SULFASALAZINE [Suspect]
     Active Substance: SULFASALAZINE
     Route: 048
  545. SULFASALAZINE [Suspect]
     Active Substance: SULFASALAZINE
     Dosage: 1 DOSAGE FORM, QD
     Route: 048
  546. SULFASALAZINE [Suspect]
     Active Substance: SULFASALAZINE
     Route: 048
  547. SULFASALAZINE [Suspect]
     Active Substance: SULFASALAZINE
     Route: 048
  548. SULFASALAZINE [Suspect]
     Active Substance: SULFASALAZINE
     Route: 048
  549. SULFASALAZINE [Suspect]
     Active Substance: SULFASALAZINE
     Route: 048
  550. SULFASALAZINE [Suspect]
     Active Substance: SULFASALAZINE
     Route: 048
  551. SULFASALAZINE [Suspect]
     Active Substance: SULFASALAZINE
  552. SULFASALAZINE [Suspect]
     Active Substance: SULFASALAZINE
     Route: 048
  553. SULFASALAZINE [Suspect]
     Active Substance: SULFASALAZINE
  554. SULFASALAZINE [Suspect]
     Active Substance: SULFASALAZINE
     Route: 048
  555. SULFASALAZINE [Suspect]
     Active Substance: SULFASALAZINE
     Route: 048
  556. SULFASALAZINE [Suspect]
     Active Substance: SULFASALAZINE
  557. SULFASALAZINE [Suspect]
     Active Substance: SULFASALAZINE
     Route: 048
  558. SULFASALAZINE [Suspect]
     Active Substance: SULFASALAZINE
     Route: 048
  559. SULFASALAZINE [Suspect]
     Active Substance: SULFASALAZINE
     Route: 048
  560. SULFASALAZINE [Suspect]
     Active Substance: SULFASALAZINE
     Route: 048
  561. SULFASALAZINE [Suspect]
     Active Substance: SULFASALAZINE
     Route: 048
  562. SULFASALAZINE [Suspect]
     Active Substance: SULFASALAZINE
  563. TOFACITINIB CITRATE [Suspect]
     Active Substance: TOFACITINIB CITRATE
     Indication: Rheumatoid arthritis
  564. TOFACITINIB CITRATE [Suspect]
     Active Substance: TOFACITINIB CITRATE
     Indication: Psoriatic arthropathy
  565. TOFACITINIB CITRATE [Suspect]
     Active Substance: TOFACITINIB CITRATE
     Route: 048
  566. TOFACITINIB CITRATE [Suspect]
     Active Substance: TOFACITINIB CITRATE
  567. TOFACITINIB CITRATE [Suspect]
     Active Substance: TOFACITINIB CITRATE
     Route: 058
  568. PREDNISONE [Suspect]
     Active Substance: PREDNISONE
     Indication: Rheumatoid arthritis
     Route: 048
  569. PREDNISONE [Suspect]
     Active Substance: PREDNISONE
  570. HYDROXYCHLOROQUINE SULFATE [Suspect]
     Active Substance: HYDROXYCHLOROQUINE SULFATE
     Indication: Systemic lupus erythematosus
  571. HYDROXYCHLOROQUINE SULFATE [Suspect]
     Active Substance: HYDROXYCHLOROQUINE SULFATE
     Indication: Rheumatoid arthritis
     Route: 048
  572. HYDROXYCHLOROQUINE SULFATE [Suspect]
     Active Substance: HYDROXYCHLOROQUINE SULFATE
     Indication: Product used for unknown indication
  573. HYDROXYCHLOROQUINE SULFATE [Suspect]
     Active Substance: HYDROXYCHLOROQUINE SULFATE
     Route: 048
  574. HYDROXYCHLOROQUINE SULFATE [Suspect]
     Active Substance: HYDROXYCHLOROQUINE SULFATE
     Route: 048
  575. HYDROXYCHLOROQUINE SULFATE [Suspect]
     Active Substance: HYDROXYCHLOROQUINE SULFATE
  576. HYDROXYCHLOROQUINE SULFATE [Suspect]
     Active Substance: HYDROXYCHLOROQUINE SULFATE
     Route: 048
  577. HYDROXYCHLOROQUINE SULFATE [Suspect]
     Active Substance: HYDROXYCHLOROQUINE SULFATE
  578. HYDROXYCHLOROQUINE SULFATE [Suspect]
     Active Substance: HYDROXYCHLOROQUINE SULFATE
     Route: 048
  579. HYDROXYCHLOROQUINE SULFATE [Suspect]
     Active Substance: HYDROXYCHLOROQUINE SULFATE
  580. HYDROXYCHLOROQUINE SULFATE [Suspect]
     Active Substance: HYDROXYCHLOROQUINE SULFATE
     Route: 016
  581. HYDROXYCHLOROQUINE SULFATE [Suspect]
     Active Substance: HYDROXYCHLOROQUINE SULFATE
     Route: 058
  582. HYDROXYCHLOROQUINE SULFATE [Suspect]
     Active Substance: HYDROXYCHLOROQUINE SULFATE
  583. HYDROXYCHLOROQUINE SULFATE [Suspect]
     Active Substance: HYDROXYCHLOROQUINE SULFATE
     Route: 066
  584. HYDROXYCHLOROQUINE SULFATE [Suspect]
     Active Substance: HYDROXYCHLOROQUINE SULFATE
     Route: 048
  585. CELECOXIB [Suspect]
     Active Substance: CELECOXIB
     Indication: Rheumatoid arthritis
     Dosage: 10 MG, QD
     Route: 048
  586. CELECOXIB [Suspect]
     Active Substance: CELECOXIB
     Dosage: 2.0 DOSAGE FORM, QD
     Route: 048
  587. CELECOXIB [Suspect]
     Active Substance: CELECOXIB
  588. CELECOXIB [Suspect]
     Active Substance: CELECOXIB
  589. APREPITANT [Suspect]
     Active Substance: APREPITANT
     Indication: Product used for unknown indication
     Route: 042
  590. APREPITANT [Suspect]
     Active Substance: APREPITANT
     Route: 048
  591. APREPITANT [Suspect]
     Active Substance: APREPITANT
     Route: 042
  592. APREPITANT [Suspect]
     Active Substance: APREPITANT
  593. APREPITANT [Suspect]
     Active Substance: APREPITANT
  594. OXYCODONE AND ACETAMINOPHEN [Suspect]
     Active Substance: ACETAMINOPHEN\OXYCODONE HYDROCHLORIDE
     Indication: Product used for unknown indication
  595. OXYCODONE AND ACETAMINOPHEN [Suspect]
     Active Substance: ACETAMINOPHEN\OXYCODONE HYDROCHLORIDE
  596. OXYCODONE AND ACETAMINOPHEN [Suspect]
     Active Substance: ACETAMINOPHEN\OXYCODONE HYDROCHLORIDE
  597. PANTOPRAZOLE SODIUM ANHYDROUS [Suspect]
     Active Substance: PANTOPRAZOLE SODIUM ANHYDROUS
     Indication: Product used for unknown indication
  598. ADVIL [Suspect]
     Active Substance: IBUPROFEN
     Indication: Product used for unknown indication
  599. ADVIL [Suspect]
     Active Substance: IBUPROFEN
  600. ARAVA [Suspect]
     Active Substance: LEFLUNOMIDE
     Indication: Rheumatoid arthritis
  601. ARAVA [Suspect]
     Active Substance: LEFLUNOMIDE
     Route: 005
  602. ARAVA [Suspect]
     Active Substance: LEFLUNOMIDE
  603. ARAVA [Suspect]
     Active Substance: LEFLUNOMIDE
     Route: 048
  604. ARAVA [Suspect]
     Active Substance: LEFLUNOMIDE
     Route: 019
  605. ARAVA [Suspect]
     Active Substance: LEFLUNOMIDE
     Route: 048
  606. ARAVA [Suspect]
     Active Substance: LEFLUNOMIDE
     Route: 048
  607. ATIVAN [Suspect]
     Active Substance: LORAZEPAM
     Indication: Rheumatoid arthritis
  608. AZATHIOPRINE [Suspect]
     Active Substance: AZATHIOPRINE
     Indication: Rheumatoid arthritis
     Route: 058
  609. CAFFEINE [Suspect]
     Active Substance: CAFFEINE
     Indication: Rheumatoid arthritis
  610. CAFFEINE [Suspect]
     Active Substance: CAFFEINE
  611. AMINOSALICYLATE CALCIUM [Suspect]
     Active Substance: AMINOSALICYLATE CALCIUM
     Indication: Product used for unknown indication
  612. CALCIUM GLUCONATE [Suspect]
     Active Substance: CALCIUM GLUCONATE
     Indication: Product used for unknown indication
  613. CALCIUM LACTATE [Suspect]
     Active Substance: CALCIUM LACTATE
     Indication: Product used for unknown indication
  614. CODEINE [Suspect]
     Active Substance: CODEINE
     Indication: Rheumatoid arthritis
  615. CODEINE [Suspect]
     Active Substance: CODEINE
  616. CODEINE [Suspect]
     Active Substance: CODEINE
  617. CODEINE [Suspect]
     Active Substance: CODEINE
  618. DIPHENHYDRAMINE HYDROCHLORIDE [Suspect]
     Active Substance: DIPHENHYDRAMINE HYDROCHLORIDE
     Indication: Product used for unknown indication
  619. DOXYCYCLINE [Suspect]
     Active Substance: DOXYCYCLINE
     Indication: Product used for unknown indication
     Route: 005
  620. DOXYCYCLINE [Suspect]
     Active Substance: DOXYCYCLINE
  621. ERGOCALCIFEROL [Suspect]
     Active Substance: ERGOCALCIFEROL
     Indication: Rheumatoid arthritis
  622. ERYTHROMYCIN [Suspect]
     Active Substance: ERYTHROMYCIN
     Indication: Product used for unknown indication
  623. GLUCOSAMINE [Suspect]
     Active Substance: GLUCOSAMINE
     Indication: Rheumatoid arthritis
     Route: 048
  624. HYALURONIDASE [Suspect]
     Active Substance: HYALURONIDASE
     Indication: Product used for unknown indication
  625. HYDROCORTISONE [Suspect]
     Active Substance: HYDROCORTISONE
     Indication: Rheumatoid arthritis
     Route: 058
  626. HYDROCORTISONE [Suspect]
     Active Substance: HYDROCORTISONE
     Route: 048
  627. HYDROCORTISONE [Suspect]
     Active Substance: HYDROCORTISONE
     Route: 058
  628. HYDROCORTISONE [Suspect]
     Active Substance: HYDROCORTISONE
  629. HYDROCORTISONE [Suspect]
     Active Substance: HYDROCORTISONE
  630. HYDROCORTISONE [Suspect]
     Active Substance: HYDROCORTISONE
  631. HYDROCORTISONE [Suspect]
     Active Substance: HYDROCORTISONE
  632. HYDROCORTISONE [Suspect]
     Active Substance: HYDROCORTISONE
     Route: 048
  633. HYDROCORTISONE [Suspect]
     Active Substance: HYDROCORTISONE
     Route: 048
  634. HYDROCORTISONE [Suspect]
     Active Substance: HYDROCORTISONE
  635. HYDROCORTISONE [Suspect]
     Active Substance: HYDROCORTISONE
     Route: 058
  636. HYDROCORTISONE [Suspect]
     Active Substance: HYDROCORTISONE
  637. HYDROCORTISONE [Suspect]
     Active Substance: HYDROCORTISONE
  638. HYDROCORTISONE [Suspect]
     Active Substance: HYDROCORTISONE
     Route: 003
  639. HYDROCORTISONE [Suspect]
     Active Substance: HYDROCORTISONE
     Route: 003
  640. HYDROCORTISONE BUTYRATE [Suspect]
     Active Substance: HYDROCORTISONE BUTYRATE
     Indication: Rheumatoid arthritis
     Route: 058
  641. NEOMYCIN [Suspect]
     Active Substance: NEOMYCIN
     Indication: Product used for unknown indication
  642. OTEZLA [Suspect]
     Active Substance: APREMILAST
     Indication: Product used for unknown indication
     Route: 048
  643. OTEZLA [Suspect]
     Active Substance: APREMILAST
  644. OTEZLA [Suspect]
     Active Substance: APREMILAST
     Route: 048
  645. OTEZLA [Suspect]
     Active Substance: APREMILAST
  646. OTEZLA [Suspect]
     Active Substance: APREMILAST
  647. OXYCODONE TEREPHTHALATE [Suspect]
     Active Substance: OXYCODONE TEREPHTHALATE
     Indication: Product used for unknown indication
  648. OXYCODONE TEREPHTHALATE [Suspect]
     Active Substance: OXYCODONE TEREPHTHALATE
     Route: 016
  649. SULFASALAZINE [Suspect]
     Active Substance: SULFASALAZINE
     Indication: Rheumatoid arthritis
     Route: 048
  650. SULFASALAZINE [Suspect]
     Active Substance: SULFASALAZINE
     Indication: Product used for unknown indication
     Route: 048
  651. SULFASALAZINE [Suspect]
     Active Substance: SULFASALAZINE
  652. SULFASALAZINE [Suspect]
     Active Substance: SULFASALAZINE
     Route: 048
  653. SULFASALAZINE [Suspect]
     Active Substance: SULFASALAZINE
     Route: 048
  654. SULFASALAZINE [Suspect]
     Active Substance: SULFASALAZINE
     Dosage: 1 G (1 EVERY 5 DAYS)
  655. SULFASALAZINE [Suspect]
     Active Substance: SULFASALAZINE
     Route: 048
  656. TRAMADOL HYDROCHLORIDE [Suspect]
     Active Substance: TRAMADOL HYDROCHLORIDE
     Indication: Product used for unknown indication
  657. PSEUDOEPHEDRINE\TRIPROLIDINE [Suspect]
     Active Substance: PSEUDOEPHEDRINE\TRIPROLIDINE
     Indication: Rheumatoid arthritis
  658. PSEUDOEPHEDRINE\TRIPROLIDINE [Suspect]
     Active Substance: PSEUDOEPHEDRINE\TRIPROLIDINE
  659. PSEUDOEPHEDRINE\TRIPROLIDINE [Suspect]
     Active Substance: PSEUDOEPHEDRINE\TRIPROLIDINE
  660. CALTRATE WITH VITAMIN D [Suspect]
     Active Substance: CALCIUM CARBONATE\CHOLECALCIFEROL
     Indication: Product used for unknown indication
  661. CETIRIZINE [Suspect]
     Active Substance: CETIRIZINE HYDROCHLORIDE
     Indication: Rheumatoid arthritis
  662. CETIRIZINE [Suspect]
     Active Substance: CETIRIZINE HYDROCHLORIDE
     Indication: Product used for unknown indication
  663. CETIRIZINE [Suspect]
     Active Substance: CETIRIZINE HYDROCHLORIDE
     Indication: Off label use
  664. CETIRIZINE [Suspect]
     Active Substance: CETIRIZINE HYDROCHLORIDE
     Route: 048
  665. CETIRIZINE [Suspect]
     Active Substance: CETIRIZINE HYDROCHLORIDE
     Route: 048
  666. CETIRIZINE [Suspect]
     Active Substance: CETIRIZINE HYDROCHLORIDE
  667. CALTRATE [Suspect]
     Active Substance: CALCIUM CARBONATE
     Indication: Product used for unknown indication
  668. EMEND [Suspect]
     Active Substance: APREPITANT
     Indication: Product used for unknown indication

REACTIONS (173)
  - Pulmonary fibrosis [Fatal]
  - Hypoaesthesia [Fatal]
  - Swollen joint count increased [Fatal]
  - Maternal exposure during pregnancy [Fatal]
  - Urticaria [Fatal]
  - Therapeutic product effect decreased [Fatal]
  - Sciatica [Fatal]
  - Type 2 diabetes mellitus [Fatal]
  - Road traffic accident [Fatal]
  - Contraindicated product administered [Fatal]
  - Drug ineffective [Fatal]
  - Maternal exposure timing unspecified [Fatal]
  - Rheumatic fever [Fatal]
  - Psoriatic arthropathy [Fatal]
  - Live birth [Fatal]
  - Abdominal discomfort [Fatal]
  - Arthropathy [Fatal]
  - Arthralgia [Fatal]
  - Peripheral swelling [Fatal]
  - Dyspnoea [Fatal]
  - Discomfort [Fatal]
  - Impaired healing [Fatal]
  - Joint swelling [Fatal]
  - Injury [Fatal]
  - Liver injury [Fatal]
  - Lower limb fracture [Fatal]
  - Lower respiratory tract infection [Fatal]
  - Lung disorder [Fatal]
  - Muscle injury [Fatal]
  - Intentional product use issue [Fatal]
  - Abdominal pain upper [Fatal]
  - Adjustment disorder with depressed mood [Fatal]
  - Alopecia [Fatal]
  - Amnesia [Fatal]
  - Anti-cyclic citrullinated peptide antibody positive [Fatal]
  - Anxiety [Fatal]
  - Arthritis [Fatal]
  - Asthenia [Fatal]
  - Asthma [Fatal]
  - Autoimmune disorder [Fatal]
  - Blister [Fatal]
  - Blood cholesterol increased [Fatal]
  - Bone erosion [Fatal]
  - Bursitis [Fatal]
  - C-reactive protein abnormal [Fatal]
  - C-reactive protein increased [Fatal]
  - Chest pain [Fatal]
  - Colitis ulcerative [Fatal]
  - Condition aggravated [Fatal]
  - Confusional state [Fatal]
  - Contusion [Fatal]
  - Crohn^s disease [Fatal]
  - Decreased appetite [Fatal]
  - Deep vein thrombosis postoperative [Fatal]
  - Delirium [Fatal]
  - Depression [Fatal]
  - Diarrhoea [Fatal]
  - Breast cancer stage III [Fatal]
  - Dizziness [Fatal]
  - Drug hypersensitivity [Fatal]
  - Drug tolerance decreased [Fatal]
  - Dry mouth [Fatal]
  - Duodenal ulcer perforation [Fatal]
  - Dyspepsia [Fatal]
  - Ear infection [Fatal]
  - Exostosis [Fatal]
  - Facet joint syndrome [Fatal]
  - Fatigue [Fatal]
  - Feeling hot [Fatal]
  - Fibromyalgia [Fatal]
  - Folliculitis [Fatal]
  - Foot deformity [Fatal]
  - Frequent bowel movements [Fatal]
  - Gait disturbance [Fatal]
  - Gastrointestinal disorder [Fatal]
  - General physical health deterioration [Fatal]
  - Glossodynia [Fatal]
  - Grip strength [Fatal]
  - Grip strength decreased [Fatal]
  - Hand deformity [Fatal]
  - Helicobacter infection [Fatal]
  - Headache [Fatal]
  - Hepatic cirrhosis [Fatal]
  - Hepatic enzyme increased [Fatal]
  - Hypercholesterolaemia [Fatal]
  - Hypersensitivity [Fatal]
  - Hypertension [Fatal]
  - Ill-defined disorder [Fatal]
  - Infection [Fatal]
  - Inflammation [Fatal]
  - Infusion related reaction [Fatal]
  - Insomnia [Fatal]
  - Irritable bowel syndrome [Fatal]
  - Joint dislocation [Fatal]
  - Joint range of motion decreased [Fatal]
  - Joint stiffness [Fatal]
  - Lip dry [Fatal]
  - Liver disorder [Fatal]
  - Malaise [Fatal]
  - Mobility decreased [Fatal]
  - Off label use [Fatal]
  - Pruritus [Fatal]
  - Pyrexia [Fatal]
  - Rash [Fatal]
  - Rheumatoid arthritis [Fatal]
  - Rheumatoid factor positive [Fatal]
  - Sinusitis [Fatal]
  - Sleep disorder [Fatal]
  - Sleep disorder due to general medical condition, insomnia type [Fatal]
  - Stomatitis [Fatal]
  - Swelling [Fatal]
  - Synovitis [Fatal]
  - Systemic lupus erythematosus [Fatal]
  - Vomiting [Fatal]
  - Weight increased [Fatal]
  - Wheezing [Fatal]
  - Wound [Fatal]
  - Nasopharyngitis [Fatal]
  - Pain [Fatal]
  - Pemphigus [Fatal]
  - Pericarditis [Fatal]
  - Pregnancy [Fatal]
  - Drug intolerance [Fatal]
  - Dislocation of vertebra [Fatal]
  - C-reactive protein [Fatal]
  - Back pain [Fatal]
  - Body temperature increased [Fatal]
  - Ear pain [Fatal]
  - Gait inability [Fatal]
  - Hip arthroplasty [Fatal]
  - Knee arthroplasty [Fatal]
  - Muscle spasms [Fatal]
  - Muscle spasticity [Fatal]
  - Musculoskeletal pain [Fatal]
  - Musculoskeletal stiffness [Fatal]
  - Night sweats [Fatal]
  - Obesity [Fatal]
  - Oedema [Fatal]
  - Osteoarthritis [Fatal]
  - Paraesthesia [Fatal]
  - Peripheral venous disease [Fatal]
  - Prescribed overdose [Fatal]
  - Product use issue [Fatal]
  - Respiratory disorder [Fatal]
  - Therapy non-responder [Fatal]
  - Treatment failure [Fatal]
  - Abdominal pain [Fatal]
  - Visual impairment [Fatal]
  - Porphyria acute [Fatal]
  - Rectal haemorrhage [Fatal]
  - Weight decreased [Fatal]
  - White blood cell count increased [Fatal]
  - Wound infection [Fatal]
  - X-ray abnormal [Fatal]
  - Product use in unapproved indication [Fatal]
  - Retinitis [Fatal]
  - Pain in extremity [Fatal]
  - Osteoporosis [Fatal]
  - Pneumonia [Fatal]
  - Thrombocytopenia [Unknown]
  - Oedema peripheral [Fatal]
  - Walking aid user [Fatal]
  - Nausea [Fatal]
  - Red blood cell sedimentation rate increased [Fatal]
  - Underdose [Unknown]
  - Laboratory test abnormal [Fatal]
  - Laryngitis [Fatal]
  - Lupus vulgaris [Fatal]
  - Lupus-like syndrome [Fatal]
  - Memory impairment [Fatal]
  - Migraine [Fatal]
  - Muscular weakness [Fatal]
  - Pancreatitis [Fatal]
